FAERS Safety Report 10957448 (Version 1)
Quarter: 2015Q1

REPORT INFORMATION
  Report Type: Spontaneous
  Country: US (occurrence: None)
  Receive Date: 20150325
  Receipt Date: 20150325
  Transmission Date: 20150721
  Serious: Yes (Life-Threatening, Hospitalization)
  Sender: FDA-Public Use
  Company Number: None

PATIENT
  Age: 47 Year
  Sex: Male
  Weight: 136.99 kg

DRUGS (8)
  1. DALIRESP [Concomitant]
     Active Substance: ROFLUMILAST
  2. DOLLAR GENERAL BRAND SLEEPING AID (GEL-CAPS) [Concomitant]
  3. PERCOCET [Concomitant]
     Active Substance: ACETAMINOPHEN\OXYCODONE HYDROCHLORIDE
  4. PROAIR HFA [Concomitant]
     Active Substance: ALBUTEROL SULFATE
  5. ANORO ELLIPTA [Suspect]
     Active Substance: UMECLIDINIUM BROMIDE\VILANTEROL TRIFENATATE
     Indication: THERAPY CESSATION
     Dosage: 1 INHALATION DAILY
     Route: 055
     Dates: start: 20140816, end: 20150323
  6. XANAX [Concomitant]
     Active Substance: ALPRAZOLAM
  7. ANORO ELLIPTA [Suspect]
     Active Substance: UMECLIDINIUM BROMIDE\VILANTEROL TRIFENATATE
     Indication: CHRONIC OBSTRUCTIVE PULMONARY DISEASE
     Dosage: 1 INHALATION DAILY
     Route: 055
     Dates: start: 20140816, end: 20150323
  8. ANORO ELLIPTA [Suspect]
     Active Substance: UMECLIDINIUM BROMIDE\VILANTEROL TRIFENATATE
     Indication: BRONCHITIS CHRONIC
     Dosage: 1 INHALATION DAILY
     Route: 055
     Dates: start: 20140816, end: 20150323

REACTIONS (8)
  - General physical health deterioration [None]
  - Device ineffective [None]
  - Dizziness [None]
  - Insomnia [None]
  - Speech disorder [None]
  - Hyperhidrosis [None]
  - Paraesthesia [None]
  - Dyspnoea [None]

NARRATIVE: CASE EVENT DATE: 20150322
